FAERS Safety Report 10526860 (Version 2)
Quarter: 2014Q4

REPORT INFORMATION
  Report Type: Spontaneous
  Country: US (occurrence: US)
  Receive Date: 20141020
  Receipt Date: 20141020
  Transmission Date: 20150528
  Serious: No
  Sender: FDA-Public Use
  Company Number: US-TEVA-464841USA

PATIENT
  Age: 62 Year
  Sex: Female

DRUGS (2)
  1. ESTROGENS CONJUGATED [Concomitant]
     Active Substance: ESTROGENS, CONJUGATED
  2. CALCITRIOL. [Suspect]
     Active Substance: CALCITRIOL
     Dosage: .5 MICROGRAM DAILY;
     Dates: start: 20130228

REACTIONS (2)
  - Paraesthesia [Unknown]
  - Drug ineffective [Unknown]

NARRATIVE: CASE EVENT DATE: 201302
